FAERS Safety Report 8750057 (Version 2)
Quarter: 2012Q4

REPORT INFORMATION
  Report Type: Spontaneous
  Country: US (occurrence: None)
  Receive Date: 20120809
  Receipt Date: 20120822
  Transmission Date: 20130627
  Serious: Yes (Other)
  Sender: FDA-Public Use
  Company Number: HA12-228-AE

PATIENT
  Age: 81 Year
  Sex: Male
  Weight: 66.23 kg

DRUGS (1)
  1. METFORMIN HYDROCHLORIDE [Suspect]
     Indication: GLUCOSE TOLERANCE IMPAIRED
     Dosage: 1 TALBET BID, ORAL
     Dates: start: 201201, end: 20120210

REACTIONS (5)
  - MYALGIA [None]
  - FEELING HOT [None]
  - MUSCLE DISORDER [None]
  - PAIN IN EXTREMITY [None]
  - TENDON DISORDER [None]
